FAERS Safety Report 8903819 (Version 1)
Quarter: 2012Q4

REPORT INFORMATION
  Report Type: 
  Country: GB (occurrence: GB)
  Receive Date: 20121113
  Receipt Date: 20121113
  Transmission Date: 20130627
  Serious: Yes (Other)
  Sender: FDA-Public Use
  Company Number: GB-JNJFOC-20121013056

PATIENT
  Sex: Male

DRUGS (1)
  1. XEPLION [Suspect]
     Indication: SCHIZOPHRENIA, PARANOID TYPE
     Route: 030
     Dates: start: 20120622

REACTIONS (2)
  - Drug dose omission [Unknown]
  - Treatment noncompliance [Unknown]
